FAERS Safety Report 23936847 (Version 1)
Quarter: 2024Q2

REPORT INFORMATION
  Report Type: Spontaneous
  Country: US (occurrence: US)
  Receive Date: 20240604
  Receipt Date: 20240604
  Transmission Date: 20240716
  Serious: No
  Sender: FDA-Public Use
  Company Number: US-SEPTODONT-2024018272

PATIENT
  Sex: Male

DRUGS (1)
  1. MEPIVACAINE HYDROCHLORIDE [Suspect]
     Active Substance: MEPIVACAINE HYDROCHLORIDE
     Indication: Dental local anaesthesia
     Route: 004

REACTIONS (2)
  - Product container issue [Unknown]
  - Product container seal issue [Unknown]
